FAERS Safety Report 10307186 (Version 2)
Quarter: 2014Q3

REPORT INFORMATION
  Report Type: Spontaneous
  Country: FR (occurrence: FR)
  Receive Date: 20140716
  Receipt Date: 20140820
  Transmission Date: 20150326
  Serious: Yes (Other)
  Sender: FDA-Public Use
  Company Number: FR-UCBSA-2014005067

PATIENT
  Age: 47 Year
  Sex: Female
  Weight: 67 kg

DRUGS (2)
  1. KEPPRA [Suspect]
     Active Substance: LEVETIRACETAM
     Indication: EPILEPSY
     Dosage: 250 MG, 2X/DAY (BID)
     Route: 048
     Dates: start: 20140414, end: 20140424
  2. URBANYL [Concomitant]
     Active Substance: CLOBAZAM
     Indication: EPILEPSY
     Dosage: 5 MG, UNK
     Route: 048
     Dates: start: 20140414, end: 20140427

REACTIONS (1)
  - Hepatocellular injury [Recovered/Resolved with Sequelae]

NARRATIVE: CASE EVENT DATE: 20140424
